FAERS Safety Report 5149975-6 (Version None)
Quarter: 2006Q4

REPORT INFORMATION
  Report Type: 
  Country: None (occurrence: None)
  Receive Date: 20061108
  Receipt Date: 20061026
  Transmission Date: 20070319
  Serious: Yes (Hospitalization, Other)
  Sender: FDA-Public Use
  Company Number: 2006062874

PATIENT
  Age: 61 Year
  Sex: Female
  Weight: 99.3 kg

DRUGS (7)
  1. SUTENT [Suspect]
     Indication: RENAL CELL CARCINOMA STAGE UNSPECIFIED
     Dosage: 50 + 37.5 MG (50 MG, 1 IN 1 D), ORAL - SEE IMAGE
     Route: 048
     Dates: start: 20060705, end: 20060801
  2. SUTENT [Suspect]
     Indication: RENAL CELL CARCINOMA STAGE UNSPECIFIED
     Dosage: 50 + 37.5 MG (50 MG, 1 IN 1 D), ORAL - SEE IMAGE
     Route: 048
     Dates: start: 20051027
  3. PAROXETINE [Concomitant]
  4. ACETAMINOPHEN                 (PARACETAAMOL) [Concomitant]
  5. ASPIRIN [Concomitant]
  6. ALUMINUM HYDROXIDE AND MAGNESIUM TRISILICATE [Concomitant]
  7. OMEPRAZOLE [Concomitant]

REACTIONS (38)
  - ABDOMINAL PAIN UPPER [None]
  - ANAEMIA [None]
  - BLOOD CHLORIDE DECREASED [None]
  - BLOOD CREATININE INCREASED [None]
  - BLOOD POTASSIUM INCREASED [None]
  - BLOOD SODIUM DECREASED [None]
  - BLOOD UREA INCREASED [None]
  - CYTOMEGALOVIRUS INFECTION [None]
  - DECREASED APPETITE [None]
  - DEHYDRATION [None]
  - DIARRHOEA [None]
  - DISEASE PROGRESSION [None]
  - DUODENITIS [None]
  - DYSGEUSIA [None]
  - EPISTAXIS [None]
  - FATIGUE [None]
  - FUNGAL INFECTION [None]
  - GASTRIC ULCER [None]
  - GASTRITIS [None]
  - GASTROOESOPHAGEAL REFLUX DISEASE [None]
  - HAEMATOCRIT DECREASED [None]
  - HYPOKALAEMIA [None]
  - HYPONATRAEMIA [None]
  - HYPOTHYROIDISM [None]
  - HYPOVOLAEMIA [None]
  - MELAENA [None]
  - MENTAL STATUS CHANGES [None]
  - NAUSEA [None]
  - OESOPHAGITIS [None]
  - PAIN [None]
  - PEPTIC ULCER [None]
  - PLATELET COUNT DECREASED [None]
  - PLEURAL EFFUSION [None]
  - PNEUMONIA [None]
  - PROTHROMBIN TIME PROLONGED [None]
  - ULCER HAEMORRHAGE [None]
  - URINARY TRACT INFECTION [None]
  - VOMITING [None]
